FAERS Safety Report 14203172 (Version 13)
Quarter: 2021Q1

REPORT INFORMATION
  Report Type: Report from Study
  Country: DE (occurrence: DE)
  Receive Date: 20171120
  Receipt Date: 20210122
  Transmission Date: 20210419
  Serious: Yes (Death, Hospitalization, Other)
  Sender: FDA-Public Use
  Company Number: DE-BRISTOL-MYERS SQUIBB COMPANY-BMS-2017-103042

PATIENT
  Age: 36 Year
  Sex: Female

DRUGS (2)
  1. IPILIMUMAB [Suspect]
     Active Substance: IPILIMUMAB
     Indication: MALIGNANT MELANOMA
     Dosage: 180 MG, Q3WK
     Route: 065
     Dates: start: 20171030
  2. NIVOLUMAB [Suspect]
     Active Substance: NIVOLUMAB
     Indication: MALIGNANT MELANOMA
     Dosage: 60 MG, Q3WK
     Route: 042
     Dates: start: 20171030

REACTIONS (5)
  - Hepatic enzyme increased [Unknown]
  - Pharyngeal disorder [Unknown]
  - General physical health deterioration [Not Recovered/Not Resolved]
  - Hyperthyroidism [Not Recovered/Not Resolved]
  - Connective tissue neoplasm [Fatal]

NARRATIVE: CASE EVENT DATE: 20171106
